FAERS Safety Report 5639331-6 (Version None)
Quarter: 2008Q1

REPORT INFORMATION
  Report Type: 
  Country: None (occurrence: None)
  Receive Date: 20080131
  Receipt Date: 20071113
  Transmission Date: 20080703
  Serious: No
  Sender: FDA-Public Use
  Company Number: 163-21880-07100106

PATIENT
  Age: 82 Year
  Sex: Female
  Weight: 77.1115 kg

DRUGS (11)
  1. REVLIMID [Suspect]
     Indication: MULTIPLE MYELOMA
     Dosage: 5 MG, 1 IN 1 D, ORAL ; 5 MG, 1 IN 1 D, ORAL
     Route: 048
     Dates: start: 20070920
  2. REVLIMID [Suspect]
     Indication: MULTIPLE MYELOMA
     Dosage: 5 MG, 1 IN 1 D, ORAL ; 5 MG, 1 IN 1 D, ORAL
     Route: 048
     Dates: start: 20071025
  3. NEXIUM [Concomitant]
  4. WARFARIN SODIUM [Concomitant]
  5. ONDANSETRON HCL [Concomitant]
  6. REQUIP [Concomitant]
  7. TOPROL-XL [Concomitant]
  8. FUROSEMIDE [Concomitant]
  9. DILTIAZEM [Concomitant]
  10. ZOFRAN [Concomitant]
  11. VELCADE [Concomitant]

REACTIONS (8)
  - BACK PAIN [None]
  - BLISTER [None]
  - CHILLS [None]
  - DIARRHOEA [None]
  - FATIGUE [None]
  - HEADACHE [None]
  - NAUSEA [None]
  - PRURITUS [None]
